FAERS Safety Report 7889989-6 (Version None)
Quarter: 2011Q4

REPORT INFORMATION
  Report Type: 
  Country: None (occurrence: None)
  Receive Date: 20111103
  Receipt Date: 20111026
  Transmission Date: 20120403
  Serious: Yes (Hospitalization, Other)
  Sender: FDA-Public Use
  Company Number: PHHY2011JP95157

PATIENT
  Age: 80 Year
  Sex: Male

DRUGS (1)
  1. VALSARTAN [Suspect]

REACTIONS (3)
  - CEREBRAL INFARCTION [None]
  - AMAUROSIS FUGAX [None]
  - HYPOTENSION [None]
